FAERS Safety Report 18120029 (Version 3)
Quarter: 2020Q3

REPORT INFORMATION
  Report Type: Spontaneous
  Country: SE (occurrence: SE)
  Receive Date: 20200806
  Receipt Date: 20200812
  Transmission Date: 20201103
  Serious: Yes (Other)
  Sender: FDA-Public Use
  Company Number: SE-JNJFOC-20200800605

PATIENT
  Age: 4 Week
  Sex: Female

DRUGS (2)
  1. STELARA [Suspect]
     Active Substance: USTEKINUMAB
     Indication: CROHN^S DISEASE
     Route: 063
     Dates: start: 202004, end: 202005
  2. STELARA [Suspect]
     Active Substance: USTEKINUMAB
     Indication: CHOLANGITIS SCLEROSING

REACTIONS (2)
  - Exposure via breast milk [Recovered/Resolved]
  - Bone marrow disorder [Recovered/Resolved]

NARRATIVE: CASE EVENT DATE: 20200514
